FAERS Safety Report 18050918 (Version 1)
Quarter: 2020Q3

REPORT INFORMATION
  Report Type: Spontaneous
  Country: CN (occurrence: CN)
  Receive Date: 20200721
  Receipt Date: 20200721
  Transmission Date: 20201103
  Serious: Yes (Other)
  Sender: FDA-Public Use
  Company Number: CN-BAYER-2020-141492

PATIENT
  Age: 57 Year
  Sex: Male
  Weight: 65 kg

DRUGS (7)
  1. BAYASPIRIN 100 MG [Interacting]
     Active Substance: ASPIRIN
     Indication: ANTIPLATELET THERAPY
     Dosage: 100 MG, QD
     Route: 048
     Dates: start: 20200605, end: 20200622
  2. AVELOX [Suspect]
     Active Substance: MOXIFLOXACIN HYDROCHLORIDE
     Indication: ANTI-INFECTIVE THERAPY
     Dosage: UNK
     Dates: start: 20200605
  3. SAMSCA [Concomitant]
     Active Substance: TOLVAPTAN
  4. ATORVASTATIN [Concomitant]
     Active Substance: ATORVASTATIN
  5. TICAGRELOR. [Interacting]
     Active Substance: TICAGRELOR
     Indication: ANTIPLATELET THERAPY
     Dosage: UNK
     Dates: start: 20200605
  6. TORASEMIDE [Concomitant]
     Active Substance: TORSEMIDE
  7. LAN SU [Concomitant]

REACTIONS (5)
  - Pleural effusion [None]
  - Labelled drug-drug interaction medication error [None]
  - Haemothorax [None]
  - Bronchial haemorrhage [None]
  - Haemoptysis [None]

NARRATIVE: CASE EVENT DATE: 202006
